FAERS Safety Report 10525081 (Version 7)
Quarter: 2015Q2

REPORT INFORMATION
  Report Type: Spontaneous
  Country: US (occurrence: US)
  Receive Date: 20141017
  Receipt Date: 20150422
  Transmission Date: 20150821
  Serious: Yes (Hospitalization, Other)
  Sender: FDA-Public Use
  Company Number: US-PFIZER INC-2014281586

PATIENT
  Age: 76 Year
  Sex: Female
  Weight: 64 kg

DRUGS (8)
  1. GLIMEPINE [Concomitant]
     Dosage: 1 MG, UNK
     Dates: start: 201408
  2. VITAMIN D /00107901/ [Concomitant]
     Active Substance: ERGOCALCIFEROL
     Dosage: 5000 MG, DAILY
  3. TRAMADOL [Concomitant]
     Active Substance: TRAMADOL
     Dosage: 50 MG, AS NEEDED
     Dates: start: 201408
  4. LOZARTEN [Concomitant]
     Dosage: 50 MG, UNK
     Dates: start: 201408
  5. SUTENT [Suspect]
     Active Substance: SUNITINIB MALATE
     Indication: RENAL CANCER METASTATIC
     Dosage: 50 MG, DAILY
     Dates: start: 20140801
  6. SUTENT [Suspect]
     Active Substance: SUNITINIB MALATE
     Dosage: 25 MG, DAILY
     Dates: start: 20140930
  7. SUTENT [Suspect]
     Active Substance: SUNITINIB MALATE
     Dosage: UNK
  8. OMEPRAZOLE. [Concomitant]
     Active Substance: OMEPRAZOLE
     Dosage: 40 MG, UNK
     Dates: start: 201408

REACTIONS (19)
  - Rash generalised [Recovered/Resolved]
  - Gait disturbance [Recovered/Resolved]
  - Vomiting [Recovered/Resolved]
  - Tremor [Unknown]
  - Drug intolerance [Recovering/Resolving]
  - Lip pain [Not Recovered/Not Resolved]
  - Weight decreased [Recovering/Resolving]
  - Palmar-plantar erythrodysaesthesia syndrome [Not Recovered/Not Resolved]
  - Activities of daily living impaired [Recovered/Resolved]
  - Malaise [Unknown]
  - Oral mucosal blistering [Not Recovered/Not Resolved]
  - Tongue blistering [Not Recovered/Not Resolved]
  - Oral disorder [Not Recovered/Not Resolved]
  - Glossodynia [Not Recovered/Not Resolved]
  - Diarrhoea [Recovered/Resolved]
  - Pain in extremity [Not Recovered/Not Resolved]
  - Amnesia [Not Recovered/Not Resolved]
  - Blister [Not Recovered/Not Resolved]
  - Stomatitis [Not Recovered/Not Resolved]
